FAERS Safety Report 24361172 (Version 1)
Quarter: 2024Q3

REPORT INFORMATION
  Report Type: Spontaneous
  Country: CN (occurrence: CN)
  Receive Date: 20240925
  Receipt Date: 20240925
  Transmission Date: 20241017
  Serious: Yes (Hospitalization)
  Sender: ROCHE
  Company Number: CN-ROCHE-10000086549

PATIENT
  Sex: Female

DRUGS (11)
  1. TRASTUZUMAB EMTANSINE [Suspect]
     Active Substance: TRASTUZUMAB EMTANSINE
     Indication: Breast cancer
     Route: 042
     Dates: start: 20240326
  2. LACTULOSE [Concomitant]
     Active Substance: LACTULOSE
     Indication: Constipation
     Route: 048
     Dates: start: 2023
  3. Potassium Chloride Sustained Release Tablets (potassium chloride) [Concomitant]
     Indication: Hypokalaemia
     Route: 048
     Dates: start: 2024
  4. Aescuven Forte Tablet (seed of aesculus hippocastanum) [Concomitant]
     Indication: Oedema peripheral
     Route: 048
     Dates: start: 20240220
  5. 0.1% Sodium Hyaluronate Eye Drops [Concomitant]
     Indication: Dry eye
     Route: 031
     Dates: start: 20240717
  6. BOVINE BASIC FIBROBLAST GROWTH FACTOR [Concomitant]
     Indication: Dry eye
     Route: 031
     Dates: start: 20240717
  7. LEVOTHYROXINE SODIUM [Concomitant]
     Active Substance: LEVOTHYROXINE SODIUM
     Indication: Hypothyroidism
     Route: 048
     Dates: start: 2024
  8. PREDNISONE [Concomitant]
     Active Substance: PREDNISONE
     Indication: Hypopituitarism
     Route: 048
     Dates: start: 202011
  9. PREDNISONE [Concomitant]
     Active Substance: PREDNISONE
     Route: 048
     Dates: start: 202011
  10. PIOGLITAZONE HYDROCHLORIDE [Concomitant]
     Active Substance: PIOGLITAZONE HYDROCHLORIDE
     Route: 048
     Dates: start: 20240829
  11. INSULIN ASPART [Concomitant]
     Active Substance: INSULIN ASPART
     Dosage: 12 UNITS
     Route: 058

REACTIONS (1)
  - Type 2 diabetes mellitus [Recovering/Resolving]

NARRATIVE: CASE EVENT DATE: 20240828
